FAERS Safety Report 8153519-4 (Version None)
Quarter: 2012Q1

REPORT INFORMATION
  Report Type: 
  Country: None (occurrence: None)
  Receive Date: 20120103
  Receipt Date: 20111028
  Transmission Date: 20120608
  Serious: No
  Sender: FDA-Public Use
  Company Number: AE-2011-002836

PATIENT
  Age: 56 Year
  Sex: Male
  Weight: 84.8226 kg

DRUGS (4)
  1. NEUPOGEN [Concomitant]
  2. PEGASYS [Concomitant]
  3. INCIVEK [Suspect]
     Dosage: (750 MG,Q7-9HRS)
     Dates: start: 20110916
  4. RIBAVIRIN (RIBAVRIN) [Concomitant]

REACTIONS (3)
  - HAEMORRHOIDS [None]
  - HAEMATOCHEZIA [None]
  - FATIGUE [None]
